FAERS Safety Report 17048804 (Version 1)
Quarter: 2019Q4

REPORT INFORMATION
  Report Type: Spontaneous
  Country: US (occurrence: US)
  Receive Date: 20191118
  Receipt Date: 20191118
  Transmission Date: 20200122
  Serious: No
  Sender: FDA-Public Use
  Company Number: None

PATIENT
  Age: 62 Year

DRUGS (1)
  1. EQUATE IBUPROFEN [Suspect]
     Active Substance: IBUPROFEN
     Indication: MYALGIA
     Dosage: ?          QUANTITY:2 TABLET(S);?
     Route: 048
     Dates: start: 20191117, end: 20191117

REACTIONS (4)
  - Product taste abnormal [None]
  - Tongue discomfort [None]
  - Product odour abnormal [None]
  - Suspected product contamination [None]

NARRATIVE: CASE EVENT DATE: 20191117
